FAERS Safety Report 23172465 (Version 1)
Quarter: 2023Q4

REPORT INFORMATION
  Report Type: Report from Study
  Country: US (occurrence: US)
  Receive Date: 20231110
  Receipt Date: 20231110
  Transmission Date: 20240109
  Serious: Yes (Other)
  Sender: FDA-Public Use
  Company Number: US-BAYER-2023A160679

PATIENT
  Age: 48 Year
  Sex: Male

DRUGS (2)
  1. ASPIRIN [Suspect]
     Active Substance: ASPIRIN
     Indication: Low cardiac output syndrome
     Dosage: UNK
  2. BIVALIRUDIN [Concomitant]
     Active Substance: BIVALIRUDIN

REACTIONS (3)
  - Haemorrhage [None]
  - Anaemia [None]
  - Off label use [None]
